FAERS Safety Report 4266087-4 (Version None)
Quarter: 2004Q1

REPORT INFORMATION
  Report Type: 
  Country: None (occurrence: None)
  Receive Date: 20040106
  Receipt Date: 20031230
  Transmission Date: 20041129
  Serious: Yes (Disabling)
  Sender: FDA-Public Use
  Company Number: 200310642BNE

PATIENT
  Age: 49 Year
  Sex: Female

DRUGS (3)
  1. CIPROFLOXACIN [Suspect]
     Indication: URINARY TRACT INFECTION
     Dosage: 500 MG, BID, ORAL
     Route: 048
     Dates: start: 20031203, end: 20031206
  2. BENDROFLUAZIDE [Concomitant]
  3. ATENOLOL [Concomitant]

REACTIONS (2)
  - PERIARTHRITIS [None]
  - PERIORBITAL OEDEMA [None]
